FAERS Safety Report 18014190 (Version 3)
Quarter: 2020Q3

REPORT INFORMATION
  Report Type: Spontaneous
  Country: ZA (occurrence: ZA)
  Receive Date: 20200713
  Receipt Date: 20200728
  Transmission Date: 20201103
  Serious: Yes (Hospitalization)
  Sender: FDA-Public Use
  Company Number: ZA-MYLANLABS-2020M1062415

PATIENT
  Age: 67 Year
  Sex: Female
  Weight: 61.5 kg

DRUGS (4)
  1. OGIVRI [Suspect]
     Active Substance: TRASTUZUMAB-DKST
     Dosage: UNK
     Route: 042
     Dates: start: 20200723
  2. OGIVRI [Suspect]
     Active Substance: TRASTUZUMAB-DKST
     Indication: BREAST CANCER
     Dosage: 480 MILLIGRAM, Q3W
     Route: 042
     Dates: start: 20200702, end: 20200702
  3. OGIVRI [Suspect]
     Active Substance: TRASTUZUMAB-DKST
     Dosage: UNK
     Route: 042
     Dates: start: 20200702, end: 20200702
  4. OXYGEN. [Concomitant]
     Active Substance: OXYGEN
     Dosage: UNK

REACTIONS (3)
  - Feeling cold [Recovered/Resolved]
  - Dyspnoea [Recovered/Resolved]
  - Chills [Recovered/Resolved]

NARRATIVE: CASE EVENT DATE: 20200702
